FAERS Safety Report 7988595-2 (Version None)
Quarter: 2011Q4

REPORT INFORMATION
  Report Type: 
  Country: None (occurrence: None)
  Receive Date: 20111218
  Receipt Date: 20070824
  Transmission Date: 20120403
  Serious: Yes (Other)
  Sender: FDA-Public Use
  Company Number: PHHY2007MX011475

PATIENT
  Sex: Female

DRUGS (1)
  1. DIOVAN [Suspect]
     Indication: HYPERTENSION
     Dosage: 160 MG 1 TABLET PER DAY
     Route: 048
     Dates: start: 20060601

REACTIONS (2)
  - TUBERCULOSIS [None]
  - RENAL DISORDER [None]
